FAERS Safety Report 6409488-8 (Version None)
Quarter: 2009Q4

REPORT INFORMATION
  Report Type: 
  Country: None (occurrence: None)
  Receive Date: 20091019
  Receipt Date: 20091014
  Transmission Date: 20100525
  Serious: No
  Sender: FDA-Public Use
  Company Number: 20097181

PATIENT
  Age: 60 Year
  Sex: Female

DRUGS (9)
  1. LIORESAL [Suspect]
     Indication: MUSCLE SPASTICITY
     Dosage: SEE B5, MCG, DAILY, INTRATHECAL
     Route: 037
  2. BYSTOLIC [Concomitant]
  3. BACLOFEN [Concomitant]
     Route: 048
  4. BETHANECHOL XL [Concomitant]
  5. FLOMAX [Concomitant]
  6. GABAPENTIN [Concomitant]
  7. KLOR-CON [Concomitant]
  8. PREVACID [Concomitant]
  9. TYSABRI MONTHLY INJ [Concomitant]

REACTIONS (29)
  - BACK PAIN [None]
  - BRADYPHRENIA [None]
  - CONSTIPATION [None]
  - COORDINATION ABNORMAL [None]
  - DEPRESSION [None]
  - DIAPHRAGMATIC DISORDER [None]
  - DRUG EFFECT DECREASED [None]
  - DYSPNOEA [None]
  - DYSSTASIA [None]
  - FATIGUE [None]
  - HEADACHE [None]
  - HYPOAESTHESIA [None]
  - INSOMNIA [None]
  - LOSS OF CONTROL OF LEGS [None]
  - MUSCLE SPASMS [None]
  - MUSCLE SPASTICITY [None]
  - MUSCULAR WEAKNESS [None]
  - MYOCLONUS [None]
  - NAUSEA [None]
  - PAIN [None]
  - PAIN IN EXTREMITY [None]
  - PARAESTHESIA [None]
  - POST LUMBAR PUNCTURE SYNDROME [None]
  - POSTURE ABNORMAL [None]
  - RESIDUAL URINE [None]
  - SENSORY LOSS [None]
  - URINARY INCONTINENCE [None]
  - WALKING AID USER [None]
  - WHEELCHAIR USER [None]
